FAERS Safety Report 19217160 (Version 1)
Quarter: 2021Q2

REPORT INFORMATION
  Report Type: Spontaneous
  Country: US (occurrence: US)
  Receive Date: 20210505
  Receipt Date: 20210505
  Transmission Date: 20210717
  Serious: Yes (Other)
  Sender: FDA-Public Use
  Company Number: None

PATIENT
  Age: 73 Year
  Sex: Female
  Weight: 77.11 kg

DRUGS (1)
  1. CLONIDINE 0.1MG TAB [Suspect]
     Active Substance: CLONIDINE
     Indication: BLOOD PRESSURE INCREASED
     Dosage: ?          QUANTITY:0.1 MG MILLIGRAM(S);?
     Route: 048
     Dates: start: 20210309

REACTIONS (1)
  - Ophthalmic migraine [None]

NARRATIVE: CASE EVENT DATE: 20210324
